FAERS Safety Report 5567253-8 (Version None)
Quarter: 2007Q4

REPORT INFORMATION
  Report Type: 
  Country: None (occurrence: None)
  Receive Date: 20071219
  Receipt Date: 20071212
  Transmission Date: 20080405
  Serious: Yes (Disabling)
  Sender: FDA-Public Use
  Company Number: US-BOEHRINGER INGELHEIM PHARMACEUTICALS, INC.-2007-BP-25183BP

PATIENT
  Sex: Male

DRUGS (1)
  1. MICARDIS HCT [Suspect]
     Indication: HYPERTENSION
     Route: 048
     Dates: start: 20070719, end: 20071113

REACTIONS (7)
  - BLOOD AMYLASE INCREASED [None]
  - DIZZINESS [None]
  - JAUNDICE [None]
  - LIVER FUNCTION TEST ABNORMAL [None]
  - PANCREATITIS [None]
  - PRURITUS [None]
  - PRURITUS GENERALISED [None]
